FAERS Safety Report 7393605-X (Version None)
Quarter: 2011Q2

REPORT INFORMATION
  Report Type: 
  Country: None (occurrence: None)
  Receive Date: 20110405
  Receipt Date: 20110329
  Transmission Date: 20111010
  Serious: No
  Sender: FDA-Public Use
  Company Number: US-PFIZER INC-2011069880

PATIENT
  Sex: Female
  Weight: 51.247 kg

DRUGS (3)
  1. EFFEXOR XR [Suspect]
     Indication: DEPRESSION
     Dosage: 75 MG, 1X/DAY
     Dates: start: 19950101
  2. EFFEXOR XR [Suspect]
     Dosage: 37.5 MG, UNK
     Dates: start: 20030101
  3. LEXAPRO [Concomitant]
     Dosage: 5 MG, UNK

REACTIONS (2)
  - DRUG WITHDRAWAL SYNDROME [None]
  - PAIN [None]
